FAERS Safety Report 7973980-5 (Version None)
Quarter: 2011Q4

REPORT INFORMATION
  Report Type: 
  Country: None (occurrence: None)
  Receive Date: 20111213
  Receipt Date: 20111208
  Transmission Date: 20120403
  Serious: Yes (Other)
  Sender: FDA-Public Use
  Company Number: CA-GLAXOSMITHKLINE-A0922277A

PATIENT
  Sex: Female
  Weight: 64.5 kg

DRUGS (13)
  1. SERTRALINE HYDROCHLORIDE [Concomitant]
     Route: 065
  2. VITAMIN TAB [Concomitant]
     Route: 065
  3. ZINC [Concomitant]
     Route: 065
  4. VITAMIN B COMPLEX CAP [Concomitant]
  5. SYNTHROID [Concomitant]
  6. ANTIBIOTIC [Concomitant]
     Dates: start: 20101225
  7. VENTOLIN [Concomitant]
     Dosage: 1PUFF AS REQUIRED
     Route: 065
  8. PREDNISONE TAB [Concomitant]
  9. PANTOPRAZOLE [Concomitant]
     Dosage: 40MG UNKNOWN
     Route: 065
  10. LEVOTHYROXINE SODIUM [Concomitant]
     Dosage: .075MG UNKNOWN
     Route: 065
  11. ADVAIR DISKUS 100/50 [Suspect]
     Indication: ASTHMA
     Dosage: 1PUFF TWICE PER DAY
     Route: 055
     Dates: start: 20030101
  12. BIOTIN [Concomitant]
     Route: 065
  13. CALCIUM [Concomitant]
     Indication: ARTHRALGIA
     Route: 065

REACTIONS (22)
  - EXERCISE TOLERANCE DECREASED [None]
  - NAUSEA [None]
  - CHEST X-RAY ABNORMAL [None]
  - INCREASED UPPER AIRWAY SECRETION [None]
  - WEIGHT INCREASED [None]
  - EXTRAPULMONARY TUBERCULOSIS [None]
  - FATIGUE [None]
  - PANIC ATTACK [None]
  - PAIN [None]
  - PNEUMONITIS [None]
  - INFLUENZA [None]
  - COUGH [None]
  - DYSPEPSIA [None]
  - BODY HEIGHT DECREASED [None]
  - CHILLS [None]
  - MALAISE [None]
  - THYROID DISORDER [None]
  - NASOPHARYNGITIS [None]
  - COLD SWEAT [None]
  - WEIGHT LOSS POOR [None]
  - PYREXIA [None]
  - VOMITING [None]
